FAERS Safety Report 6152174-2 (Version None)
Quarter: 2009Q2

REPORT INFORMATION
  Report Type: 
  Country: None (occurrence: None)
  Receive Date: 20090410
  Receipt Date: 20090407
  Transmission Date: 20091009
  Serious: Yes (Death, Hospitalization, Other)
  Sender: FDA-Public Use
  Company Number: SG-ROXANE LABORATORIES, INC.-2009-RO-00353RO

PATIENT
  Age: 51 Year
  Sex: Female

DRUGS (7)
  1. MORPHINE [Suspect]
     Indication: METASTATIC PAIN
     Route: 048
  2. MORPHINE [Suspect]
     Dosage: 7.5MG
     Route: 048
  3. MORPHINE [Suspect]
     Route: 042
  4. ONDANSETRON [Suspect]
     Indication: NAUSEA
     Dosage: 24MG
     Route: 042
  5. ONDANSETRON [Suspect]
     Indication: VOMITING
  6. METOCLOPRAMIDE [Concomitant]
     Indication: VOMITING
  7. NIFEDIPINE [Concomitant]
     Indication: HYPERTENSION
     Dosage: 120MG

REACTIONS (6)
  - ABDOMINAL PAIN [None]
  - DEATH [None]
  - MYOCARDIAL INFARCTION [None]
  - NAUSEA [None]
  - PNEUMONIA [None]
  - VOMITING [None]
